FAERS Safety Report 13049481 (Version 1)
Quarter: 2016Q4

REPORT INFORMATION
  Report Type: Report from Study
  Country: US (occurrence: US)
  Receive Date: 20161221
  Receipt Date: 20161221
  Transmission Date: 20170207
  Serious: Yes (Other)
  Sender: FDA-Public Use
  Company Number: US-PFIZER INC-2016580698

PATIENT
  Age: 49 Year
  Sex: Female

DRUGS (1)
  1. IBRANCE [Suspect]
     Active Substance: PALBOCICLIB
     Indication: BREAST CANCER FEMALE
     Dosage: 125 MG, DAILY
     Route: 048
     Dates: start: 20160225

REACTIONS (6)
  - Fatigue [Unknown]
  - Neoplasm progression [Unknown]
  - Neutropenia [Recovered/Resolved]
  - Contusion [Unknown]
  - Haemorrhage [Unknown]
  - Nausea [Unknown]
